FAERS Safety Report 9325917 (Version 1)
Quarter: 2013Q2

REPORT INFORMATION
  Report Type: Spontaneous
  Country: SE (occurrence: SE)
  Receive Date: 20130604
  Receipt Date: 20130604
  Transmission Date: 20140414
  Serious: Yes (Hospitalization)
  Sender: FDA-Public Use
  Company Number: SE-SANOFI-AVENTIS-2013SA054428

PATIENT
  Age: 53 Year
  Sex: Male

DRUGS (6)
  1. MULTAQ [Suspect]
     Indication: PRODUCT USED FOR UNKNOWN INDICATION
     Route: 048
  2. WARAN [Concomitant]
  3. ACE INHIBITOR NOS [Concomitant]
  4. BISOPROLOL [Concomitant]
  5. AMLODIPINE [Concomitant]
  6. VERPAMIL [Concomitant]

REACTIONS (6)
  - Cardiac failure [Unknown]
  - Dyspnoea [Unknown]
  - Oedema peripheral [Unknown]
  - Circulatory collapse [Unknown]
  - Organ failure [Unknown]
  - Hepatic congestion [Unknown]
